FAERS Safety Report 6767111-7 (Version None)
Quarter: 2010Q2

REPORT INFORMATION
  Report Type: 
  Country: None (occurrence: None)
  Receive Date: 20100614
  Receipt Date: 20100604
  Transmission Date: 20101027
  Serious: Yes (Other)
  Sender: FDA-Public Use
  Company Number: GB-JNJFOC-20100602279

PATIENT
  Age: 41 Year
  Sex: Female

DRUGS (4)
  1. ITRACONAZOLE [Suspect]
     Indication: ASPERGILLOSIS
     Route: 065
  2. ITRACONAZOLE [Suspect]
     Route: 065
  3. ITRACONAZOLE [Suspect]
     Indication: ONYCHOMYCOSIS
     Route: 065
  4. ITRACONAZOLE [Suspect]
     Route: 065

REACTIONS (3)
  - DRUG INEFFECTIVE [None]
  - DRUG RESISTANCE [None]
  - UNDERDOSE [None]
